FAERS Safety Report 7768673-3 (Version None)
Quarter: 2011Q3

REPORT INFORMATION
  Report Type: 
  Country: None (occurrence: None)
  Receive Date: 20110922
  Receipt Date: 20110315
  Transmission Date: 20111222
  Serious: No
  Sender: FDA-Public Use
  Company Number: US-ASTRAZENECA-2011SE14999

PATIENT
  Sex: Female

DRUGS (3)
  1. SEROQUEL [Suspect]
     Indication: BIPOLAR DISORDER
     Route: 048
  2. CIPROFLOXACIN [Concomitant]
  3. BACTRIM DS [Concomitant]

REACTIONS (4)
  - URINARY TRACT INFECTION [None]
  - BLOOD URINE PRESENT [None]
  - DRUG DOSE OMISSION [None]
  - DEPRESSION [None]
